FAERS Safety Report 6882340-X (Version None)
Quarter: 2010Q3

REPORT INFORMATION
  Report Type: 
  Country: None (occurrence: None)
  Receive Date: 20100729
  Receipt Date: 20100325
  Transmission Date: 20110219
  Serious: No
  Sender: FDA-Public Use
  Company Number: US-MYLANLABS-2010S1002425

PATIENT
  Age: 37 Year
  Sex: Female
  Weight: 79.38 kg

DRUGS (4)
  1. LEVOTHYROXINE SODIUM [Suspect]
     Indication: HYPOTHYROIDISM
     Route: 048
     Dates: start: 20090901
  2. LEVOTHYROXINE SODIUM [Suspect]
     Route: 048
     Dates: end: 20100204
  3. LEVOTHYROXINE SODIUM [Suspect]
     Route: 048
     Dates: start: 20100205
  4. VITAMIN D [Concomitant]

REACTIONS (19)
  - ACNE [None]
  - ANXIETY [None]
  - BLOOD CHOLESTEROL INCREASED [None]
  - BLOOD PRESSURE INCREASED [None]
  - DEPRESSION [None]
  - DISTURBANCE IN ATTENTION [None]
  - DYSPNOEA EXERTIONAL [None]
  - FATIGUE [None]
  - FEELING HOT [None]
  - GOITRE [None]
  - HYPERTENSION [None]
  - INSOMNIA [None]
  - MEMORY IMPAIRMENT [None]
  - MOOD SWINGS [None]
  - OROPHARYNGEAL PAIN [None]
  - PALPITATIONS [None]
  - PERIPHERAL COLDNESS [None]
  - SINUS DISORDER [None]
  - WEIGHT INCREASED [None]
